FAERS Safety Report 6350696-2 (Version None)
Quarter: 2009Q3

REPORT INFORMATION
  Report Type: 
  Country: None (occurrence: None)
  Receive Date: 20090911
  Receipt Date: 20090622
  Transmission Date: 20100115
  Serious: No
  Sender: FDA-Public Use
  Company Number: US-ABBOTT-07P-163-0368638-00

PATIENT
  Sex: Female
  Weight: 89.892 kg

DRUGS (3)
  1. HUMIRA [Suspect]
     Indication: RHEUMATOID ARTHRITIS
     Route: 058
     Dates: start: 20060401, end: 20061201
  2. HUMIRA [Suspect]
     Indication: PSORIATIC ARTHROPATHY
     Dosage: PEN
     Route: 058
     Dates: start: 20061201
  3. LEVOTHYROXINE SODIUM [Concomitant]
     Indication: HYPOTHYROIDISM
     Route: 048
     Dates: start: 19770101

REACTIONS (3)
  - ACCIDENTAL NEEDLE STICK [None]
  - INCORRECT DOSE ADMINISTERED [None]
  - INJECTION SITE HAEMATOMA [None]
